FAERS Safety Report 19230647 (Version 1)
Quarter: 2021Q2

REPORT INFORMATION
  Report Type: Spontaneous
  Country: US (occurrence: US)
  Receive Date: 20210506
  Receipt Date: 20210506
  Transmission Date: 20210717
  Serious: Yes (Hospitalization)
  Sender: FDA-Public Use
  Company Number: None

PATIENT
  Age: 75 Year
  Sex: Male

DRUGS (12)
  1. TRAMADOL HCL [Concomitant]
     Active Substance: TRAMADOL HYDROCHLORIDE
  2. PREDNISONE. [Concomitant]
     Active Substance: PREDNISONE
  3. CLOBETASOL [Concomitant]
     Active Substance: CLOBETASOL
  4. DOXYCYCL HYC [Concomitant]
  5. HUMIRA [Suspect]
     Active Substance: ADALIMUMAB
     Indication: PSORIASIS
     Dosage: 80MG SECTION B5 SQ?ON DAY 1, THEN 40 MG ON DAY 8, THEN 40 MG EVERY 2 WEEKS THEREAFTER
     Route: 058
     Dates: start: 20201230
  6. COLCHICINE. [Concomitant]
     Active Substance: COLCHICINE
  7. ONDANSETRON [Concomitant]
     Active Substance: ONDANSETRON
  8. NICOTINE TD [Concomitant]
  9. LISINOPRIL AND HYDROCHLOROTHIAZIDE [Concomitant]
     Active Substance: HYDROCHLOROTHIAZIDE\LISINOPRIL
  10. ALPRAZOLAM. [Concomitant]
     Active Substance: ALPRAZOLAM
  11. LISINOPRIL. [Concomitant]
     Active Substance: LISINOPRIL
  12. SSD CRE [Concomitant]

REACTIONS (2)
  - Swelling [None]
  - Influenza like illness [None]

NARRATIVE: CASE EVENT DATE: 20210116
